FAERS Safety Report 25317335 (Version 2)
Quarter: 2025Q2

REPORT INFORMATION
  Report Type: Report from Study
  Country: US (occurrence: US)
  Receive Date: 20250515
  Receipt Date: 20250520
  Transmission Date: 20250717
  Serious: Yes (Hospitalization)
  Sender: TAKEDA
  Company Number: US-TAKEDA-2025TUS045230

PATIENT
  Sex: Male
  Weight: 74.889 kg

DRUGS (2)
  1. FRUQUINTINIB [Suspect]
     Active Substance: FRUQUINTINIB
     Indication: Colon cancer
  2. FRUQUINTINIB [Suspect]
     Active Substance: FRUQUINTINIB

REACTIONS (5)
  - Abdominal pain upper [Unknown]
  - Skin burning sensation [Unknown]
  - Aphonia [Unknown]
  - Asthenia [Unknown]
  - Decreased appetite [Unknown]
